FAERS Safety Report 8512279 (Version 2)
Quarter: 2014Q2

REPORT INFORMATION
  Report Type: Spontaneous
  Country: US (occurrence: US)
  Receive Date: 20120413
  Receipt Date: 20140519
  Transmission Date: 20141212
  Serious: No
  Sender: FDA-Public Use
  Company Number: US-ASTRAZENECA-2012SE10303

PATIENT
  Age: 63 Year
  Sex: Female
  Weight: 52.2 kg

DRUGS (4)
  1. NEXIUM [Suspect]
     Indication: DYSPEPSIA
     Route: 048
  2. NEXIUM [Suspect]
     Indication: DYSPEPSIA
     Route: 048
     Dates: start: 2001, end: 201401
  3. PRILOSEC OTC [Suspect]
     Route: 048
  4. ALLERGY AND CONGESTION RELIEF D [Concomitant]

REACTIONS (9)
  - Infrequent bowel movements [Unknown]
  - Hypertension [Unknown]
  - Blood pressure abnormal [Unknown]
  - Aphagia [Not Recovered/Not Resolved]
  - Bronchitis [Unknown]
  - Nausea [Unknown]
  - Drug dose omission [Not Recovered/Not Resolved]
  - Off label use [Not Recovered/Not Resolved]
  - Drug ineffective [Unknown]
